FAERS Safety Report 17835323 (Version 1)
Quarter: 2020Q2

REPORT INFORMATION
  Report Type: Spontaneous
  Country: US (occurrence: US)
  Receive Date: 20200528
  Receipt Date: 20200528
  Transmission Date: 20200714
  Serious: Yes (Other)
  Sender: FDA-Public Use
  Company Number: US-SA-2020SA134548

PATIENT
  Sex: Male

DRUGS (1)
  1. CORTIZONE 10 [Suspect]
     Active Substance: HYDROCORTISONE
     Indication: ECZEMA

REACTIONS (2)
  - Erythema [Recovered/Resolved]
  - Steroid withdrawal syndrome [Recovered/Resolved]
